FAERS Safety Report 4516059-7 (Version None)
Quarter: 2004Q4

REPORT INFORMATION
  Report Type: 
  Country: None (occurrence: None)
  Receive Date: 20041129
  Receipt Date: 20041118
  Transmission Date: 20050328
  Serious: Yes (Death)
  Sender: FDA-Public Use
  Company Number: 2004095586

PATIENT
  Age: 87 Year
  Sex: Male

DRUGS (7)
  1. FRAGMIN [Suspect]
     Indication: DEEP VEIN THROMBOSIS
     Dosage: 15000 UNITS (15000 UNITS, DAILY)
     Dates: start: 20040927, end: 20040929
  2. WARFARIN SODIUM [Suspect]
     Indication: DEEP VEIN THROMBOSIS
     Dosage: 10 MG (2.5 MG, DAILY), ORAL
     Route: 048
     Dates: start: 20040927, end: 20040928
  3. ACETAMINOPHEN [Concomitant]
  4. PROPIOMAZINE MALEATE (PROPIOMAZINE MALEATE) [Concomitant]
  5. OXAZEPAM [Concomitant]
  6. DEXTROPROPOXYPHENE NAPSILATE (DEXTROPROPOXYPHENE NAPSILATE) [Concomitant]
  7. LANZOPRAZOLE (LANSOPRAZOLE) [Concomitant]

REACTIONS (2)
  - CEREBRAL HAEMORRHAGE [None]
  - INTERNATIONAL NORMALISED RATIO INCREASED [None]
